FAERS Safety Report 8391571-1 (Version None)
Quarter: 2012Q2

REPORT INFORMATION
  Report Type: 
  Country: None (occurrence: None)
  Receive Date: 20120529
  Receipt Date: 20120522
  Transmission Date: 20120825
  Serious: Yes (Other)
  Sender: FDA-Public Use
  Company Number: US-PFIZER INC-2012092466

PATIENT
  Sex: Male

DRUGS (1)
  1. LYRICA [Suspect]
     Dosage: 200 MG, 2X/DAY

REACTIONS (3)
  - ABNORMAL BEHAVIOUR [None]
  - MENTAL STATUS CHANGES [None]
  - MEMORY IMPAIRMENT [None]
